FAERS Safety Report 5877542-5 (Version None)
Quarter: 2008Q3

REPORT INFORMATION
  Report Type: 
  Country: None (occurrence: None)
  Receive Date: 20080909
  Receipt Date: 20080827
  Transmission Date: 20090109
  Serious: Yes (Disabling, Other)
  Sender: FDA-Public Use
  Company Number: 2008-02989

PATIENT
  Age: 77 Year
  Sex: Female
  Weight: 51 kg

DRUGS (20)
  1. VELCADE [Suspect]
     Indication: MULTIPLE MYELOMA
     Dosage: 1.7 MG, INTRAVENOUS; 0.9 MG, INTRAVENOUS; 1.3 MG, INTRAVENOUS
     Route: 042
     Dates: start: 20071022, end: 20071119
  2. VELCADE [Suspect]
     Indication: MULTIPLE MYELOMA
     Dosage: 1.7 MG, INTRAVENOUS; 0.9 MG, INTRAVENOUS; 1.3 MG, INTRAVENOUS
     Route: 042
     Dates: start: 20080121, end: 20080222
  3. VELCADE [Suspect]
     Indication: MULTIPLE MYELOMA
     Dosage: 1.7 MG, INTRAVENOUS; 0.9 MG, INTRAVENOUS; 1.3 MG, INTRAVENOUS
     Route: 042
     Dates: start: 20080303, end: 20080313
  4. VELCADE [Suspect]
     Indication: MULTIPLE MYELOMA
     Dosage: 1.7 MG, INTRAVENOUS; 0.9 MG, INTRAVENOUS; 1.3 MG, INTRAVENOUS
     Route: 042
     Dates: start: 20080324, end: 20080403
  5. DEXAMETHASONE SODIUM PHOSPHATE [Concomitant]
  6. DEXAMETHASONE [Concomitant]
  7. AMLODIPINE BESYLATE [Concomitant]
  8. LISINOPRIL [Concomitant]
  9. MARZULENE S (LEVOGLUTAMIDE, SODIUM GUALENATE) [Concomitant]
  10. ALTAT (ROXATIDINE ACETATE HYDROCHLORIDE) [Concomitant]
  11. METHYCOBAL (MECOBALAMIN) [Concomitant]
  12. ALENDRONATE SODIUM HYDRATE (ALENDRONATE SODIUM) [Concomitant]
  13. PURSENNID (SENNA LEAF) [Concomitant]
  14. CEFDINIR [Concomitant]
  15. SULFAMETHOXAZOLE AND TRIMETHOPRIM [Concomitant]
  16. MAGNESIUM OXIDE (MAGNESIUM OXIDE) [Concomitant]
  17. LECICARBON (SODIUM BICARBONATE, LECITHIN, SODIUM PHOSPHATE MONOBASIC ( [Concomitant]
  18. LAXOBERON (SODIUM PICOSULFATE) [Concomitant]
  19. PANTOL (DEXPANTHENOL) [Concomitant]
  20. PRIMPERAN TAB [Concomitant]

REACTIONS (10)
  - ABDOMINAL DISTENSION [None]
  - CONSTIPATION [None]
  - DIARRHOEA [None]
  - FALL [None]
  - GASTROINTESTINAL HYPOMOTILITY [None]
  - HERPES ZOSTER [None]
  - HYPOAESTHESIA [None]
  - HYPONATRAEMIA [None]
  - ORTHOSTATIC HYPOTENSION [None]
  - RASH ERYTHEMATOUS [None]
